FAERS Safety Report 13429947 (Version 1)
Quarter: 2017Q2

REPORT INFORMATION
  Report Type: Spontaneous
  Country: US (occurrence: US)
  Receive Date: 20170411
  Receipt Date: 20170411
  Transmission Date: 20170830
  Serious: No
  Sender: FDA-Public Use
  Company Number: None

PATIENT
  Age: 35 Year
  Sex: Female
  Weight: 71.1 kg

DRUGS (2)
  1. MAKENA [Suspect]
     Active Substance: HYDROXYPROGESTERONE CAPROATE
     Indication: PREMATURE LABOUR
     Dosage: ?          QUANTITY:4 INJECTION(S);OTHER FREQUENCY:WEEKLY;?
     Route: 058
  2. MULTI VITAMIN [Concomitant]
     Active Substance: VITAMINS

REACTIONS (8)
  - Injection site erythema [None]
  - Injection site pruritus [None]
  - Injection site swelling [None]
  - Maternal exposure during pregnancy [None]
  - Injection site induration [None]
  - Injection site hypersensitivity [None]
  - Therapy non-responder [None]
  - Injection site urticaria [None]

NARRATIVE: CASE EVENT DATE: 20170403
